FAERS Safety Report 8952935 (Version 4)
Quarter: 2013Q1

REPORT INFORMATION
  Report Type: Spontaneous
  Country: DE (occurrence: DE)
  Receive Date: 20121203
  Receipt Date: 20130304
  Transmission Date: 20140127
  Serious: Yes (Other)
  Sender: FDA-Public Use
  Company Number: DE-ELI_LILLY_AND_COMPANY-DE201210007801

PATIENT
  Sex: Female

DRUGS (6)
  1. BYETTA [Suspect]
     Indication: DIABETES MELLITUS
     Dosage: 5 UG, UNKNOWN
     Route: 058
     Dates: start: 20120911, end: 201210
  2. BYETTA [Suspect]
     Dosage: 10 UG, UNKNOWN
     Dates: start: 201210, end: 201210
  3. BYETTA [Suspect]
     Dosage: 5 UG, UNKNOWN
     Dates: start: 201210, end: 20121114
  4. BYETTA [Suspect]
     Dosage: 10 UG, UNKNOWN
     Dates: start: 20121115
  5. BYETTA [Suspect]
     Dosage: 5 UG, UNKNOWN
     Dates: end: 201302
  6. L-THYROXIN [Concomitant]
     Dosage: 150 DF, UNKNOWN

REACTIONS (8)
  - Blood pressure increased [Not Recovered/Not Resolved]
  - Blood glucose increased [Not Recovered/Not Resolved]
  - Blood glucose decreased [Recovered/Resolved]
  - Abdominal distension [Not Recovered/Not Resolved]
  - Abdominal pain upper [Not Recovered/Not Resolved]
  - Glycosylated haemoglobin increased [Not Recovered/Not Resolved]
  - Hyperhidrosis [Not Recovered/Not Resolved]
  - Dysphagia [Not Recovered/Not Resolved]
